FAERS Safety Report 25090131 (Version 1)
Quarter: 2025Q1

REPORT INFORMATION
  Report Type: Spontaneous
  Country: US (occurrence: None)
  Receive Date: 20250317
  Receipt Date: 20250317
  Transmission Date: 20250409
  Serious: Yes (Hospitalization)
  Sender: FDA-CTU
  Company Number: None

PATIENT
  Age: 88 Year
  Sex: Male

DRUGS (1)
  1. WARFARIN [Suspect]
     Active Substance: WARFARIN
     Route: 048

REACTIONS (7)
  - International normalised ratio increased [None]
  - Decreased appetite [None]
  - Epistaxis [None]
  - Gingival bleeding [None]
  - Infusion site haemorrhage [None]
  - Device dislocation [None]
  - Therapy interrupted [None]

NARRATIVE: CASE EVENT DATE: 20250124
